FAERS Safety Report 13664935 (Version 5)
Quarter: 2018Q1

REPORT INFORMATION
  Report Type: Report from Study
  Country: CO (occurrence: CO)
  Receive Date: 20170619
  Receipt Date: 20180202
  Transmission Date: 20180508
  Serious: Yes (Life-Threatening, Hospitalization, Other)
  Sender: FDA-Public Use
  Company Number: PHHY2016CO093982

PATIENT
  Age: 30 Year
  Sex: Male
  Weight: 58 kg

DRUGS (7)
  1. TRAZODONE [Concomitant]
     Active Substance: TRAZODONE HYDROCHLORIDE
     Indication: PRODUCT USED FOR UNKNOWN INDICATION
     Route: 065
  2. VITAMIN C [Suspect]
     Active Substance: ASCORBIC ACID
     Indication: PRODUCT USED FOR UNKNOWN INDICATION
     Dosage: UNK
     Route: 065
  3. DOLEX [Concomitant]
     Active Substance: IBUPROFEN
     Indication: PRODUCT USED FOR UNKNOWN INDICATION
     Route: 065
  4. FERROUS SULFATE. [Concomitant]
     Active Substance: FERROUS SULFATE
     Indication: PRODUCT USED FOR UNKNOWN INDICATION
     Dosage: UNK
     Route: 065
  5. REVOLADE [Suspect]
     Active Substance: ELTROMBOPAG
     Dosage: 25 MG, QD
     Route: 048
  6. REVOLADE [Suspect]
     Active Substance: ELTROMBOPAG
     Indication: IMMUNE THROMBOCYTOPENIC PURPURA
     Dosage: 25 MG, BID
     Route: 048
     Dates: start: 20141109
  7. ACETAMINOPHEN. [Concomitant]
     Active Substance: ACETAMINOPHEN
     Indication: PRODUCT USED FOR UNKNOWN INDICATION
     Dosage: UNK
     Route: 065

REACTIONS (19)
  - Petechiae [Unknown]
  - General physical health deterioration [Unknown]
  - Stress [Unknown]
  - Contusion [Unknown]
  - Mouth haemorrhage [Unknown]
  - Insomnia [Unknown]
  - Influenza [Unknown]
  - Platelet count decreased [Unknown]
  - Epistaxis [Unknown]
  - Malaise [Unknown]
  - Pain in jaw [Recovered/Resolved]
  - Dyspepsia [Recovered/Resolved]
  - Feeling abnormal [Unknown]
  - Gingival bleeding [Unknown]
  - Scratch [Unknown]
  - Haemorrhage [Unknown]
  - Rectal haemorrhage [Unknown]
  - Feeling abnormal [Recovered/Resolved]
  - Chest pain [Recovered/Resolved]

NARRATIVE: CASE EVENT DATE: 20160804
